FAERS Safety Report 16475218 (Version 3)
Quarter: 2023Q4

REPORT INFORMATION
  Report Type: Spontaneous
  Country: US (occurrence: US)
  Receive Date: 20190625
  Receipt Date: 20231002
  Transmission Date: 20240109
  Serious: No
  Sender: FDA-Public Use
  Company Number: US-ALEXION-81831

PATIENT
  Sex: Female

DRUGS (1)
  1. SOLIRIS [Suspect]
     Active Substance: ECULIZUMAB
     Indication: Atypical haemolytic uraemic syndrome
     Dosage: 1200 MG, Q2W
     Route: 042

REACTIONS (4)
  - Exposure during pregnancy [Unknown]
  - Therapy non-responder [Unknown]
  - Platelet count increased [Unknown]
  - Anaemia [Not Recovered/Not Resolved]
